FAERS Safety Report 8533359-4 (Version None)
Quarter: 2012Q3

REPORT INFORMATION
  Report Type: 
  Country: None (occurrence: None)
  Receive Date: 20120724
  Receipt Date: 20120716
  Transmission Date: 20120928
  Serious: Yes (Other)
  Sender: FDA-Public Use
  Company Number: PHEH2012US013670

PATIENT
  Age: 74 Year
  Sex: Male

DRUGS (1)
  1. EXELON [Suspect]
     Indication: DEMENTIA ALZHEIMER'S TYPE
     Dosage: 4.6 MG, QD (9MG/5CM2 / 24 HOURS)
     Route: 062
     Dates: start: 20120621

REACTIONS (2)
  - DEMENTIA WITH LEWY BODIES [None]
  - HALLUCINATION [None]
